FAERS Safety Report 9846626 (Version 1)
Quarter: 2014Q1

REPORT INFORMATION
  Report Type: Spontaneous
  Country: GB (occurrence: GB)
  Receive Date: 20140127
  Receipt Date: 20140127
  Transmission Date: 20141002
  Serious: Yes (Disabling)
  Sender: FDA-Public Use
  Company Number: GB-GLAXOSMITHKLINE-B0961048A

PATIENT
  Age: 43 Year
  Sex: Female
  Weight: 82.55 kg

DRUGS (5)
  1. LAMICTAL [Suspect]
     Indication: TEMPORAL LOBE EPILEPSY
     Dosage: 200MG PER DAY
     Route: 048
     Dates: start: 2010
  2. CITALOPRAM [Suspect]
     Indication: DEPRESSION
     Dosage: 30MG PER DAY
     Route: 048
     Dates: start: 1997
  3. CLOBAZAM [Suspect]
     Indication: TEMPORAL LOBE EPILEPSY
     Dosage: 20MG PER DAY
     Route: 048
  4. MIRTAZAPINE [Suspect]
     Indication: DEPRESSION
     Dosage: 15MG PER DAY
     Route: 048
  5. UNSPECIFIED DRUGS [Concomitant]
     Indication: PAIN

REACTIONS (12)
  - Insomnia [Not Recovered/Not Resolved]
  - Ataxia [Not Recovered/Not Resolved]
  - Headache [Not Recovered/Not Resolved]
  - Hyperhidrosis [Not Recovered/Not Resolved]
  - Tinnitus [Not Recovered/Not Resolved]
  - Fatigue [Not Recovered/Not Resolved]
  - Amnesia [Not Recovered/Not Resolved]
  - Increased appetite [Not Recovered/Not Resolved]
  - Aggression [Not Recovered/Not Resolved]
  - Menorrhagia [Not Recovered/Not Resolved]
  - Bruxism [Not Recovered/Not Resolved]
  - Hallucination, visual [Not Recovered/Not Resolved]
